FAERS Safety Report 9849749 (Version 1)
Quarter: 2014Q1

REPORT INFORMATION
  Report Type: Spontaneous
  Country: US (occurrence: US)
  Receive Date: 20140128
  Receipt Date: 20140128
  Transmission Date: 20141002
  Serious: No
  Sender: FDA-Public Use
  Company Number: US-PFIZER INC-2014020516

PATIENT
  Age: 50 Year
  Sex: Female
  Weight: 72.56 kg

DRUGS (3)
  1. ADVIL [Suspect]
     Indication: NECK PAIN
     Dosage: UNK, AS NEEDED (ONE OR TWO TABLETS IN A DAY DEPENDING ON PAIN)
     Route: 048
     Dates: start: 201401
  2. KLONOPIN [Concomitant]
     Indication: SLEEP DISORDER
     Dosage: UNK (SPLITTING THE 10 MG TABLET IN HALF, AND TAKING HALF TABLET), DAILY
  3. KLONOPIN [Concomitant]
     Indication: ANXIETY

REACTIONS (1)
  - Drug ineffective [Unknown]
